FAERS Safety Report 7948658-4 (Version None)
Quarter: 2011Q4

REPORT INFORMATION
  Report Type: 
  Country: None (occurrence: None)
  Receive Date: 20111130
  Receipt Date: 20111130
  Transmission Date: 20120403
  Serious: No
  Sender: FDA-Public Use
  Company Number: None

PATIENT
  Age: 47 Year
  Sex: Male
  Weight: 68 kg

DRUGS (2)
  1. ZOSYN [Concomitant]
  2. VANCOMYCIN [Suspect]
     Indication: CELLULITIS
     Dosage: 1 G, 1.25 G
     Route: 042
     Dates: start: 20110428, end: 20110504

REACTIONS (1)
  - NEPHROPATHY TOXIC [None]
